FAERS Safety Report 25277771 (Version 1)
Quarter: 2025Q2

REPORT INFORMATION
  Report Type: Spontaneous
  Country: DE (occurrence: DE)
  Receive Date: 20250507
  Receipt Date: 20250507
  Transmission Date: 20250716
  Serious: Yes (Other)
  Sender: DAIICHI
  Company Number: DE-DSJP-DS-2025-139425-DE

PATIENT
  Sex: Male
  Weight: 85 kg

DRUGS (1)
  1. EDOXABAN TOSYLATE [Suspect]
     Active Substance: EDOXABAN TOSYLATE
     Indication: Atrial fibrillation
     Route: 065
     Dates: start: 2022

REACTIONS (3)
  - Fatigue [Not Recovered/Not Resolved]
  - Cyanosis [Not Recovered/Not Resolved]
  - Therapy change [Not Recovered/Not Resolved]

NARRATIVE: CASE EVENT DATE: 20220101
